FAERS Safety Report 10506103 (Version 3)
Quarter: 2017Q3

REPORT INFORMATION
  Report Type: Spontaneous
  Country: CA (occurrence: CA)
  Receive Date: 20141008
  Receipt Date: 20170818
  Transmission Date: 20171127
  Serious: Yes (Other)
  Sender: FDA-Public Use
  Company Number: CA-009507513-1410CAN002773

PATIENT
  Age: 44 Year
  Sex: Female

DRUGS (5)
  1. ADVIL COLD AND FLU (IBUPROFEN (+) PSEUDOEPHEDRINE HYDROCHLORIDE) [Concomitant]
     Dosage: 1 DF, UNK
     Route: 048
     Dates: start: 20140125
  2. ZENHALE [Suspect]
     Active Substance: FORMOTEROL FUMARATE\MOMETASONE FUROATE
     Indication: PNEUMONIA
     Dosage: 2 PUFFS, BID
     Route: 048
     Dates: start: 20140129, end: 20140130
  3. ADVIL COLD AND FLU (IBUPROFEN (+) PSEUDOEPHEDRINE HYDROCHLORIDE) [Concomitant]
     Dosage: 1 DF, BID
     Route: 048
     Dates: start: 20140108, end: 20140117
  4. AVAMYS [Concomitant]
     Active Substance: FLUTICASONE FUROATE
     Dosage: 2 SQUIRTS EA, BID, NOSTRIL
     Route: 045
  5. AVELOX [Suspect]
     Active Substance: MOXIFLOXACIN HYDROCHLORIDE
     Indication: PNEUMONIA
     Dosage: 1 DF, QD
     Route: 048
     Dates: start: 20140117, end: 20140130

REACTIONS (13)
  - Aggression [Not Recovered/Not Resolved]
  - Aphasia [Not Recovered/Not Resolved]
  - Disturbance in attention [Not Recovered/Not Resolved]
  - Irritability [Not Recovered/Not Resolved]
  - Nervousness [Not Recovered/Not Resolved]
  - Amnesia [Not Recovered/Not Resolved]
  - Paranoia [Not Recovered/Not Resolved]
  - Depression [Not Recovered/Not Resolved]
  - Tremor [Not Recovered/Not Resolved]
  - Palpitations [Not Recovered/Not Resolved]
  - Anxiety [Not Recovered/Not Resolved]
  - Dry mouth [Not Recovered/Not Resolved]
  - Insomnia [Not Recovered/Not Resolved]

NARRATIVE: CASE EVENT DATE: 20140124
